FAERS Safety Report 13041015 (Version 1)
Quarter: 2016Q4

REPORT INFORMATION
  Report Type: Spontaneous
  Country: US (occurrence: US)
  Receive Date: 20161219
  Receipt Date: 20161219
  Transmission Date: 20170207
  Serious: No
  Sender: FDA-Public Use
  Company Number: US-ROCHE-1066165

PATIENT
  Sex: Female
  Weight: 71.73 kg

DRUGS (4)
  1. OXYCODONE [Concomitant]
     Active Substance: OXYCODONE
     Indication: PAIN
     Route: 048
  2. ZELBORAF [Suspect]
     Active Substance: VEMURAFENIB
     Indication: METASTATIC MALIGNANT MELANOMA
     Route: 048
     Dates: start: 20120531
  3. ZELBORAF [Suspect]
     Active Substance: VEMURAFENIB
     Route: 065
  4. OMEPRAZOLE. [Concomitant]
     Active Substance: OMEPRAZOLE
     Indication: GASTROOESOPHAGEAL REFLUX DISEASE
     Route: 048

REACTIONS (12)
  - Dizziness [Unknown]
  - Mass [Unknown]
  - Skin papilloma [Unknown]
  - Arthralgia [Unknown]
  - Hyperkeratosis [Unknown]
  - Pruritus [Unknown]
  - Rash [Recovered/Resolved]
  - Fatigue [Unknown]
  - Visual impairment [Unknown]
  - Alopecia [Unknown]
  - Oedema [Recovered/Resolved]
  - Blister [Unknown]
